FAERS Safety Report 5724684-0 (Version None)
Quarter: 2008Q2

REPORT INFORMATION
  Report Type: 
  Country: None (occurrence: None)
  Receive Date: 20080430
  Receipt Date: 20080430
  Transmission Date: 20081010
  Serious: Yes (Life-Threatening, Hospitalization)
  Sender: FDA-Public Use
  Company Number: None

PATIENT
  Sex: Male
  Weight: 83.9154 kg

DRUGS (2)
  1. DIGITEK  0.25MG  BERTEK [Suspect]
     Indication: CARDIAC FAILURE CONGESTIVE
     Dosage: 0.25MG  TT,PO,QD,  PO
     Route: 048
     Dates: start: 20070201, end: 20071001
  2. DIGITEK  0.125MG  BERTEK [Suspect]
     Indication: CARDIAC FAILURE CONGESTIVE
     Dosage: 0.25MG  TT,PO,QD,  PO
     Route: 048
     Dates: start: 20071002, end: 20080428

REACTIONS (3)
  - CARDIOACTIVE DRUG LEVEL INCREASED [None]
  - LOSS OF CONSCIOUSNESS [None]
  - VENTRICULAR FIBRILLATION [None]
